FAERS Safety Report 9607611 (Version 2)
Quarter: 2013Q4

REPORT INFORMATION
  Report Type: Report from Study
  Country: US (occurrence: US)
  Receive Date: 20131009
  Receipt Date: 20131009
  Transmission Date: 20140711
  Serious: Yes (Other)
  Sender: FDA-Public Use
  Company Number: PHEH2013US020571

PATIENT
  Age: 26 Year
  Sex: Female

DRUGS (3)
  1. GILENYA [Suspect]
     Indication: MULTIPLE SCLEROSIS
     Dosage: 0.5 MG, QD
     Route: 048
     Dates: start: 20130201
  2. VITAMIN B12 [Concomitant]
  3. VITAMIN D [Concomitant]

REACTIONS (6)
  - Convulsion [Unknown]
  - Deja vu [Unknown]
  - Hearing impaired [Unknown]
  - Vomiting [Unknown]
  - Nausea [Unknown]
  - Vision blurred [Unknown]
